FAERS Safety Report 5236327-3 (Version None)
Quarter: 2007Q1

REPORT INFORMATION
  Report Type: 
  Country: None (occurrence: None)
  Receive Date: 20061208
  Receipt Date: 20050805
  Transmission Date: 20070707
  Serious: Yes (Other)
  Sender: FDA-Public Use
  Company Number: 2005UW09889

PATIENT
  Age: 59 Year
  Sex: Female
  Weight: 101.6057 kg

DRUGS (21)
  1. CRESTOR [Suspect]
     Indication: BLOOD CHOLESTEROL INCREASED
     Dosage: 10 MG DAILY PO
     Route: 048
     Dates: start: 20050622
  2. ISOSORBIDE [Concomitant]
  3. METOPROLOL SUCCINATE [Concomitant]
  4. POTASSIUM ACETATE [Concomitant]
  5. WELLBUTRIN [Concomitant]
  6. OMEPRAZOLE [Concomitant]
  7. ASPIRIN [Concomitant]
  8. BLACK KOHASH [Concomitant]
  9. CLONAZEPAM [Concomitant]
  10. FLUOXETINE [Concomitant]
  11. VOLTAREN [Concomitant]
  12. FUROSEMIDE [Concomitant]
  13. KLOR-CON [Concomitant]
  14. TEMAZEPAM [Concomitant]
  15. VITAMIN E [Concomitant]
  16. FLAXSEED OIL [Concomitant]
  17. EVENING PRIMROSE OIL [Concomitant]
  18. EYE DROPS [Concomitant]
  19. LAMICTAL [Concomitant]
  20. OPTIVAR [Concomitant]
  21. COENZYME Q10 [Concomitant]

REACTIONS (3)
  - GAIT DISTURBANCE [None]
  - ILL-DEFINED DISORDER [None]
  - PAIN IN EXTREMITY [None]
